FAERS Safety Report 5020552-0 (Version None)
Quarter: 2006Q2

REPORT INFORMATION
  Report Type: 
  Country: None (occurrence: None)
  Receive Date: 20060606
  Receipt Date: 20060522
  Transmission Date: 20061013
  Serious: Yes (Other)
  Sender: FDA-Public Use
  Company Number: 2006S1004663

PATIENT
  Age: 84 Year
  Sex: Female

DRUGS (1)
  1. FENTANYL TRANSDERMAL SYSTEM [Suspect]
     Indication: ABDOMINAL PAIN
     Dosage: 100 UG/HR ; Q3D ; TRANS
     Route: 062
     Dates: start: 20060217

REACTIONS (9)
  - AGITATION [None]
  - ARTHRALGIA [None]
  - ASTHENIA [None]
  - DRUG WITHDRAWAL SYNDROME [None]
  - HYPERHIDROSIS [None]
  - INADEQUATE ANALGESIA [None]
  - MUSCLE SPASMS [None]
  - MYALGIA [None]
  - RESTLESSNESS [None]
